FAERS Safety Report 20583843 (Version 1)
Quarter: 2022Q1

REPORT INFORMATION
  Report Type: Spontaneous
  Country: CA (occurrence: CA)
  Receive Date: 20220311
  Receipt Date: 20220311
  Transmission Date: 20220423
  Serious: Yes (Life-Threatening, Other)
  Sender: FDA-Public Use
  Company Number: CA-PFIZER INC-202200358064

PATIENT
  Age: 23 Year
  Sex: Female

DRUGS (4)
  1. BUPIVACAINE HYDROCHLORIDE [Suspect]
     Active Substance: BUPIVACAINE HYDROCHLORIDE
     Dosage: UNK
     Route: 008
  2. FENTANYL [Suspect]
     Active Substance: FENTANYL
     Dosage: 2 UG
     Route: 008
  3. OXYTOCIN [Concomitant]
     Active Substance: OXYTOCIN
     Dosage: UNK
  4. PENICILLIN G [Concomitant]
     Active Substance: PENICILLIN G
     Dosage: UNK

REACTIONS (1)
  - Diplegia [Unknown]
